FAERS Safety Report 18498495 (Version 1)
Quarter: 2020Q4

REPORT INFORMATION
  Report Type: Spontaneous
  Country: CO (occurrence: CO)
  Receive Date: 20201112
  Receipt Date: 20201112
  Transmission Date: 20210114
  Serious: Yes (Death, Hospitalization, Other)
  Sender: FDA-Public Use
  Company Number: CO-009507513-2011COL007396

PATIENT
  Sex: Male

DRUGS (3)
  1. ISENTRESS [Suspect]
     Active Substance: RALTEGRAVIR POTASSIUM
     Indication: HIV INFECTION
     Dosage: 400 MILLIGRAM BID (ALSO REPORTED AS 800 MG, BID)
     Route: 048
     Dates: start: 202010
  2. TENOFOVIR [Suspect]
     Active Substance: TENOFOVIR
     Dates: start: 202010
  3. EMTRICITABINE [Suspect]
     Active Substance: EMTRICITABINE
     Dosage: UNK UNK, BID
     Dates: start: 202010

REACTIONS (2)
  - Tuberculosis [Unknown]
  - Death [Fatal]

NARRATIVE: CASE EVENT DATE: 2020
